FAERS Safety Report 7605926-3 (Version None)
Quarter: 2011Q3

REPORT INFORMATION
  Report Type: 
  Country: None (occurrence: None)
  Receive Date: 20110713
  Receipt Date: 20110629
  Transmission Date: 20111222
  Serious: Yes (Other)
  Sender: FDA-Public Use
  Company Number: PHBS2007BR20934

PATIENT
  Sex: Female
  Weight: 90 kg

DRUGS (6)
  1. GALVUS MET [Concomitant]
     Indication: DIABETES MELLITUS
     Dosage: 1 DF, BID
     Route: 048
  2. DIOVAN [Suspect]
     Indication: HYPERTENSION
     Dosage: 80 MG, BID
     Route: 048
     Dates: start: 20071001, end: 20071212
  3. DIOVAN [Suspect]
     Dosage: 160 MG, HALF A TABLET (MORNING AND NIGHT)
     Route: 048
  4. AMARYL [Concomitant]
     Indication: DIABETES MELLITUS
     Dosage: 4 MG, BID
     Route: 048
     Dates: start: 20071101
  5. METFORMIN HCL [Concomitant]
     Indication: HYPERGLYCAEMIA
     Dosage: 30 MG, TID
     Route: 048
     Dates: start: 20071101
  6. TAMOXIFEN CITRATE [Concomitant]
     Indication: BREAST CANCER
     Dosage: 1 DF, QD
     Route: 048

REACTIONS (1)
  - DIABETES MELLITUS [None]
